FAERS Safety Report 7300892-2 (Version None)
Quarter: 2011Q1

REPORT INFORMATION
  Report Type: 
  Country: None (occurrence: None)
  Receive Date: 20110103
  Receipt Date: 20091217
  Transmission Date: 20110831
  Serious: Yes (Other)
  Sender: FDA-Public Use
  Company Number: US-003854

PATIENT
  Age: 78 Year
  Sex: Male
  Weight: 53.5 kg

DRUGS (5)
  1. COMBIVENT [Concomitant]
  2. TEGRETOL [Concomitant]
  3. MULTIHANCE [Suspect]
     Indication: ARTERIOGRAM CAROTID
     Dosage: 20 ML ONCE INTRAVENOUS
     Route: 042
     Dates: start: 20091216, end: 20091216
  4. MULTIHANCE [Suspect]
     Indication: SYNCOPE
     Dosage: 20 ML ONCE INTRAVENOUS
     Route: 042
     Dates: start: 20091216, end: 20091216
  5. DIGOXIN [Concomitant]

REACTIONS (5)
  - HYPOTENSION [None]
  - HYPERHIDROSIS [None]
  - VOMITING [None]
  - UNRESPONSIVE TO STIMULI [None]
  - WHEEZING [None]
